FAERS Safety Report 10862399 (Version 1)
Quarter: 2015Q1

REPORT INFORMATION
  Report Type: Report from Study
  Country: JP (occurrence: JP)
  Receive Date: 20150224
  Receipt Date: 20150224
  Transmission Date: 20150721
  Serious: Yes (Death)
  Sender: FDA-Public Use
  Company Number: JP-SA-2015SA022680

PATIENT

DRUGS (2)
  1. DOCETAXEL. [Suspect]
     Active Substance: DOCETAXEL
     Indication: GASTRIC CANCER
     Dosage: DOSE ADMINISTERED ON DAY 1
     Route: 042
  2. S-1 [Suspect]
     Active Substance: GIMERACIL\OTERACIL\TEGAFUR
     Indication: GASTRIC CANCER
     Dosage: DOSE ADMINISTERED FROM DAY 1-14, IN 21 DAY CYCLE
     Route: 048

REACTIONS (1)
  - Thrombocytopenia [Fatal]
